FAERS Safety Report 8473318-3 (Version None)
Quarter: 2012Q2

REPORT INFORMATION
  Report Type: 
  Country: None (occurrence: None)
  Receive Date: 20120628
  Receipt Date: 20120615
  Transmission Date: 20120825
  Serious: No
  Sender: FDA-Public Use
  Company Number: US-B.I. PHARMACEUTICALS,INC./RIDGEFIELD-2012-BP-13806BP

PATIENT
  Sex: Male

DRUGS (4)
  1. PRADAXA [Suspect]
     Indication: ATRIAL FIBRILLATION
     Dosage: 300 MG
     Route: 048
     Dates: start: 20120115
  2. ALPHAGAN [Concomitant]
     Indication: EYE DISORDER
     Route: 031
  3. DIOVAN HCT [Concomitant]
     Indication: HYPERTENSION
  4. TOPROL-XL [Concomitant]
     Indication: HEART RATE ABNORMAL
     Dosage: 25 MG

REACTIONS (4)
  - ARTHRALGIA [None]
  - JOINT SWELLING [None]
  - MUSCULOSKELETAL PAIN [None]
  - MOVEMENT DISORDER [None]
